FAERS Safety Report 8089674-4 (Version None)
Quarter: 2012Q1

REPORT INFORMATION
  Report Type: 
  Country: None (occurrence: None)
  Receive Date: 20120128
  Receipt Date: 20110728
  Transmission Date: 20120608
  Serious: No
  Sender: FDA-Public Use
  Company Number: US-ABBOTT-11P-163-0835933-00

PATIENT
  Sex: Female
  Weight: 58.112 kg

DRUGS (10)
  1. LEVOXYL [Concomitant]
     Indication: HORMONE REPLACEMENT THERAPY
  2. ECTROIN [Concomitant]
     Indication: PROPHYLAXIS
  3. HUMIRA [Suspect]
     Indication: RHEUMATOID ARTHRITIS
     Dates: start: 20110401
  4. ECTROIN [Concomitant]
     Indication: CORONARY ARTERY DISEASE
  5. PANTOPRAZOLE [Concomitant]
     Indication: PRODUCT USED FOR UNKNOWN INDICATION
  6. LISINOPRIL [Concomitant]
     Indication: HYPERTENSION
  7. HUMIRA [Suspect]
     Indication: ANKYLOSING SPONDYLITIS
  8. COREG [Concomitant]
     Indication: HEART RATE INCREASED
  9. ACTONEL [Concomitant]
     Indication: OSTEOPOROSIS PROPHYLAXIS
  10. SIMVASTATIN [Concomitant]
     Indication: BLOOD CHOLESTEROL INCREASED

REACTIONS (3)
  - INCORRECT DOSE ADMINISTERED [None]
  - INJECTION SITE PAIN [None]
  - DEVICE MALFUNCTION [None]
